FAERS Safety Report 4492509-X (Version None)
Quarter: 2004Q4

REPORT INFORMATION
  Report Type: 
  Country: None (occurrence: None)
  Receive Date: 20041029
  Receipt Date: 20041027
  Transmission Date: 20050328
  Serious: Yes (Death, Life-Threatening, Hospitalization, Other)
  Sender: FDA-Public Use
  Company Number: USA-2004-0017385

PATIENT
  Age: 26 Year
  Sex: Male

DRUGS (3)
  1. OXYCONTIN [Suspect]
     Dosage: INTRAVENOUS
     Route: 042
  2. AMPHETAMINES UNSPECIFIED () [Suspect]
  3. ACETAMINOPHEN W/ CODEINE [Concomitant]

REACTIONS (5)
  - BRAIN DEATH [None]
  - CARDIAC ARREST [None]
  - MEDICATION ERROR [None]
  - PNEUMONIA ASPIRATION [None]
  - POLYSUBSTANCE ABUSE [None]
